FAERS Safety Report 5338560-9 (Version None)
Quarter: 2007Q2

REPORT INFORMATION
  Report Type: 
  Country: None (occurrence: None)
  Receive Date: 20070322
  Receipt Date: 20060918
  Transmission Date: 20071010
  Serious: Yes (Hospitalization)
  Sender: FDA-Public Use
  Company Number: 200612415BCC

PATIENT
  Age: 84 Year
  Sex: Female
  Weight: 64.4108 kg

DRUGS (7)
  1. ALEVE (CAPLET) [Suspect]
     Indication: BACK PAIN
     Dosage: 220 MG, ONCE, ORAL
     Route: 048
     Dates: start: 20060529
  2. HYDROCHLOROTHIAZIDE [Concomitant]
  3. CHOLESTEROL MEDICATION [Concomitant]
  4. ASPIRIN [Concomitant]
  5. TYLENOL [Concomitant]
  6. FOSAMAX [Concomitant]
  7. ZETIA [Concomitant]

REACTIONS (11)
  - ANAPHYLACTIC SHOCK [None]
  - ASTHENIA [None]
  - CARDIAC ENZYMES INCREASED [None]
  - DYSPNOEA [None]
  - FEELING ABNORMAL [None]
  - PRURITUS GENERALISED [None]
  - RASH GENERALISED [None]
  - SHOCK [None]
  - UNRESPONSIVE TO STIMULI [None]
  - URTICARIA [None]
  - URTICARIA GENERALISED [None]
